FAERS Safety Report 9476587 (Version 1)
Quarter: 2013Q3

REPORT INFORMATION
  Report Type: Spontaneous
  Country: US (occurrence: US)
  Receive Date: 20130826
  Receipt Date: 20130826
  Transmission Date: 20140515
  Serious: No
  Sender: FDA-Public Use
  Company Number: US-JNJFOC-20130808381

PATIENT
  Age: 56 Year
  Sex: Male
  Weight: 115.67 kg

DRUGS (14)
  1. SANDOZ FENTANYL TRANSDERMAL SYSTEM [Suspect]
     Indication: BACK PAIN
     Route: 062
     Dates: start: 20130802
  2. TRAMADOL [Concomitant]
     Indication: PAIN
     Route: 048
     Dates: start: 2012
  3. AMLODIPINE [Concomitant]
     Indication: CARDIAC DISORDER
     Route: 048
     Dates: start: 2006
  4. GABAPENTIN [Concomitant]
     Indication: NEUROPATHY PERIPHERAL
     Route: 048
     Dates: start: 201307
  5. METOPROLOL [Concomitant]
     Indication: HEART RATE
     Route: 048
     Dates: start: 2011
  6. ASA [Concomitant]
     Indication: CARDIAC DISORDER
     Route: 048
  7. TAMSULOSIN [Concomitant]
     Indication: PROSTATIC DISORDER
     Route: 048
     Dates: start: 201302
  8. ZOLPIDEM [Concomitant]
     Indication: SLEEP DISORDER
     Route: 048
     Dates: start: 2011
  9. DEPAKOTE [Concomitant]
     Indication: DEPRESSION
     Dosage: 500MGX3
     Route: 048
     Dates: start: 1998
  10. GEODON [Concomitant]
     Indication: DEPRESSION
     Route: 048
     Dates: start: 1998
  11. DULCOLAX [Concomitant]
     Indication: CONSTIPATION
     Dosage: AT NIGHT
     Route: 048
     Dates: start: 201302
  12. FLEXERIL [Concomitant]
     Indication: MUSCLE SPASMS
     Route: 048
     Dates: start: 201307
  13. HYDROCODONE [Concomitant]
     Indication: BREAKTHROUGH PAIN
     Route: 048
  14. HYDROCODONE [Concomitant]
     Indication: BREAKTHROUGH PAIN
     Route: 048
     Dates: start: 2005

REACTIONS (8)
  - Tremor [Recovering/Resolving]
  - Withdrawal syndrome [Recovering/Resolving]
  - Hyperhidrosis [Recovering/Resolving]
  - Chills [Recovering/Resolving]
  - Pyrexia [Recovering/Resolving]
  - Therapeutic response decreased [Not Recovered/Not Resolved]
  - Wrong technique in drug usage process [Not Recovered/Not Resolved]
  - Product quality issue [Unknown]
